FAERS Safety Report 9153413 (Version 1)
Quarter: 2013Q1

REPORT INFORMATION
  Report Type: Spontaneous
  Country: US (occurrence: None)
  Receive Date: 20130304
  Receipt Date: 20130304
  Transmission Date: 20140127
  Serious: Yes (Life-Threatening, Hospitalization)
  Sender: FDA-Public Use
  Company Number: None

PATIENT
  Age: 55 Year
  Sex: Female
  Weight: 62.14 kg

DRUGS (1)
  1. FERRLECIT [Suspect]
     Indication: IRON DEFICIENCY ANAEMIA
     Dosage: 125MG ONCE IV 041
     Route: 042
     Dates: start: 20130227

REACTIONS (9)
  - Nausea [None]
  - Oropharyngeal discomfort [None]
  - Paraesthesia oral [None]
  - Cold sweat [None]
  - Pallor [None]
  - Lip swelling [None]
  - Tachycardia [None]
  - Dyspnoea [None]
  - Blood pressure immeasurable [None]
